FAERS Safety Report 21982702 (Version 1)
Quarter: 2023Q1

REPORT INFORMATION
  Report Type: Spontaneous
  Country: CH (occurrence: CH)
  Receive Date: 20230213
  Receipt Date: 20230213
  Transmission Date: 20230417
  Serious: Yes (Other)
  Sender: FDA-Public Use
  Company Number: None

PATIENT
  Age: 71 Year
  Sex: Female

DRUGS (9)
  1. ERELZI [Suspect]
     Active Substance: ETANERCEPT-SZZS
     Indication: Rheumatoid arthritis
     Dosage: 50 UG, QW
     Route: 058
     Dates: start: 202211, end: 20221228
  2. BACTRIM [Concomitant]
     Active Substance: SULFAMETHOXAZOLE\TRIMETHOPRIM
     Indication: Urinary tract infection
     Dosage: UNK
     Route: 065
     Dates: start: 20221230
  3. TIZANIDINE [Concomitant]
     Active Substance: TIZANIDINE
     Indication: Urinary tract infection
     Dosage: UNK
     Route: 048
     Dates: start: 20221230
  4. LIORESAL [Concomitant]
     Active Substance: BACLOFEN
     Indication: Urinary tract infection
     Dosage: UNK
     Route: 048
     Dates: start: 20221230
  5. PERINDOPRIL [Concomitant]
     Active Substance: PERINDOPRIL
     Indication: Urinary tract infection
     Dosage: UNK
     Route: 048
     Dates: start: 20221230
  6. BISOPROLOL FUMARATE [Concomitant]
     Active Substance: BISOPROLOL FUMARATE
     Indication: Urinary tract infection
     Dosage: UNK
     Route: 048
     Dates: start: 20221230
  7. MIRABEGRON [Concomitant]
     Active Substance: MIRABEGRON
     Indication: Urinary tract infection
     Dosage: UNK
     Route: 048
     Dates: start: 20221230
  8. TORSEMIDE [Concomitant]
     Active Substance: TORSEMIDE
     Indication: Urinary tract infection
     Dosage: UNK
     Route: 048
     Dates: start: 20221230
  9. CHOLECALCIFEROL [Concomitant]
     Active Substance: CHOLECALCIFEROL
     Indication: Urinary tract infection
     Dosage: UNK
     Route: 065

REACTIONS (1)
  - Henoch-Schonlein purpura [Not Recovered/Not Resolved]

NARRATIVE: CASE EVENT DATE: 20221229
